FAERS Safety Report 4284418-6 (Version None)
Quarter: 2004Q1

REPORT INFORMATION
  Report Type: 
  Country: None (occurrence: None)
  Receive Date: 20040203
  Receipt Date: 20030926
  Transmission Date: 20041129
  Serious: Yes (Hospitalization, Other)
  Sender: FDA-Public Use
  Company Number: PHHO2003FR12275

PATIENT
  Age: 92 Year
  Sex: Male
  Weight: 74 kg

DRUGS (8)
  1. VALSARTAN +/-HCTZ VS AMLODIPINE +/-HCTZ [Suspect]
     Indication: ESSENTIAL HYPERTENSION
     Dosage: LEVEL 1
     Route: 048
     Dates: start: 19981204
  2. VALSARTAN +/-HCTZ VS AMLODIPINE +/-HCTZ [Suspect]
     Dosage: LEVEL 4
     Route: 048
  3. VALSARTAN +/-HCTZ VS AMLODIPINE +/-HCTZ [Suspect]
     Dosage: LEVEL 5
     Route: 048
  4. TEGRETOL [Concomitant]
     Indication: EPILEPSY
     Dosage: 400 MG, UNK
     Dates: start: 19990129
  5. ESIDRIX [Suspect]
     Indication: HYPERTENSION
     Dosage: 25 MG, LEVEL 5
     Route: 048
     Dates: start: 20010504
  6. MEDIATENSYL [Concomitant]
     Indication: HYPERTENSION
     Dosage: UNK, UNK
     Dates: start: 20011101
  7. ACETAMINOPHEN [Concomitant]
     Dates: start: 20030916
  8. TANGANIL [Concomitant]
     Indication: VERTIGO
     Dates: start: 20030916

REACTIONS (9)
  - ABNORMAL BEHAVIOUR [None]
  - AGGRESSION [None]
  - COGNITIVE DISORDER [None]
  - CONFUSIONAL STATE [None]
  - HYPERTENSION [None]
  - HYPOKALAEMIA [None]
  - HYPONATRAEMIA [None]
  - INCOHERENT [None]
  - PNEUMONIA [None]
